FAERS Safety Report 4939549-1 (Version None)
Quarter: 2006Q1

REPORT INFORMATION
  Report Type: 
  Country: None (occurrence: None)
  Receive Date: 20060310
  Receipt Date: 20060306
  Transmission Date: 20060701
  Serious: Yes (Other)
  Sender: FDA-Public Use
  Company Number: ZA-AVENTIS-200611395EU

PATIENT
  Age: 60 Year
  Sex: Female

DRUGS (3)
  1. NATRILIX [Suspect]
     Indication: HYPERTENSION
     Route: 048
  2. ELTROXIN [Concomitant]
  3. FEMARA [Concomitant]

REACTIONS (1)
  - LICHENOID KERATOSIS [None]
